FAERS Safety Report 7057158-8 (Version None)
Quarter: 2010Q4

REPORT INFORMATION
  Report Type: 
  Country: None (occurrence: None)
  Receive Date: 20101022
  Receipt Date: 20101013
  Transmission Date: 20110411
  Serious: Yes (Other)
  Sender: FDA-Public Use
  Company Number: PHHY2010CA68980

PATIENT
  Sex: Female

DRUGS (5)
  1. ACLASTA [Suspect]
     Indication: OSTEOPOROSIS
     Route: 042
  2. METFORMIN [Concomitant]
  3. LIPITOR [Concomitant]
  4. ALTACE [Concomitant]
  5. ADALAT [Concomitant]

REACTIONS (1)
  - OVARIAN GERM CELL TERATOMA BENIGN [None]
